FAERS Safety Report 7177478-6 (Version None)
Quarter: 2010Q4

REPORT INFORMATION
  Report Type: 
  Country: None (occurrence: None)
  Receive Date: 20101220
  Receipt Date: 20101213
  Transmission Date: 20110411
  Serious: Yes (Death)
  Sender: FDA-Public Use
  Company Number: ID-ROCHE-747320

PATIENT
  Age: 25 Year
  Sex: Female

DRUGS (15)
  1. OSELTAMIVIR [Suspect]
     Indication: AVIAN INFLUENZA
     Route: 065
     Dates: start: 20100120, end: 20100121
  2. CEFTRIAXONE SODIUM [Suspect]
     Route: 065
     Dates: start: 20100121
  3. AZITHROMYCIN [Concomitant]
     Dates: start: 20100120, end: 20100121
  4. AMOXICILLIN [Concomitant]
     Dates: start: 20100115, end: 20100119
  5. MEROPENEM [Concomitant]
     Dates: start: 20100123
  6. ACETAMINOPHEN [Concomitant]
     Indication: PROPHYLAXIS
     Dates: start: 20100115, end: 20100121
  7. RANITIDINE [Concomitant]
     Dates: start: 20100120
  8. ONDANSETRON [Concomitant]
     Dates: start: 20100120
  9. METAMIZOL [Concomitant]
     Dates: start: 20100115, end: 20100119
  10. VIT B COMPLEX [Concomitant]
     Dates: start: 20100118, end: 20100119
  11. BISOLVON [Concomitant]
     Dates: start: 20100120
  12. SUCRALFAT [Concomitant]
     Dates: start: 20100122
  13. OBH [Concomitant]
     Dates: start: 20100121
  14. FLUMUCIL [Concomitant]
     Dates: start: 20100123
  15. MORPHINE [Concomitant]
     Dates: start: 20100123

REACTIONS (1)
  - ACUTE RESPIRATORY DISTRESS SYNDROME [None]
